FAERS Safety Report 4370133-7 (Version None)
Quarter: 2004Q2

REPORT INFORMATION
  Report Type: 
  Country: None (occurrence: None)
  Receive Date: 20040527
  Receipt Date: 20040511
  Transmission Date: 20050107
  Serious: Yes (Hospitalization)
  Sender: FDA-Public Use
  Company Number: DSA_24379_2004

PATIENT
  Age: 37 Year
  Sex: Male

DRUGS (3)
  1. LORAZEPAM [Suspect]
     Dosage: 20 MG ONCE PO
     Route: 048
     Dates: start: 19950714, end: 19950714
  2. PALPIPAX [Suspect]
     Dosage: 10 TAB ONCE PO
     Route: 048
     Dates: start: 19950714, end: 19950714
  3. TANDERIL [Suspect]
     Dosage: 20 TAB ONCE PO
     Route: 048
     Dates: start: 19950714, end: 19950714

REACTIONS (4)
  - CYTOLYTIC HEPATITIS [None]
  - INTENTIONAL OVERDOSE [None]
  - RHABDOMYOLYSIS [None]
  - SUICIDE ATTEMPT [None]
